FAERS Safety Report 8603223-0 (Version None)
Quarter: 2012Q3

REPORT INFORMATION
  Report Type: 
  Country: None (occurrence: None)
  Receive Date: 20120817
  Receipt Date: 20120813
  Transmission Date: 20120928
  Serious: Yes (Other)
  Sender: FDA-Public Use
  Company Number: US-ELI_LILLY_AND_COMPANY-US201208004069

PATIENT
  Sex: Male

DRUGS (5)
  1. COREG [Concomitant]
     Dosage: UNK, UNKNOWN
  2. EFFIENT [Suspect]
     Indication: STENT PLACEMENT
     Dosage: 10 MG, QD
     Dates: start: 20120624
  3. ASPIRIN [Concomitant]
     Dosage: UNK, UNKNOWN
  4. ATORVASTATIN [Concomitant]
     Dosage: UNK, UNKNOWN
  5. OMEPRAZOLE [Concomitant]
     Dosage: UNK, UNKNOWN

REACTIONS (2)
  - ELECTROCARDIOGRAM ST SEGMENT DEPRESSION [None]
  - INCORRECT STORAGE OF DRUG [None]
